FAERS Safety Report 7890155-9 (Version None)
Quarter: 2011Q4

REPORT INFORMATION
  Report Type: 
  Country: None (occurrence: None)
  Receive Date: 20111103
  Receipt Date: 20111025
  Transmission Date: 20120403
  Serious: No
  Sender: FDA-Public Use
  Company Number: US-B.I. PHARMACEUTICALS,INC./RIDGEFIELD-2011-BP-24902BP

PATIENT
  Sex: Male

DRUGS (4)
  1. ASPIRIN [Concomitant]
     Indication: ROUTINE HEALTH MAINTENANCE
     Dosage: 81 MG
     Dates: start: 19950101
  2. PRADAXA [Suspect]
     Indication: ATRIAL FIBRILLATION
     Dosage: 300 MG
     Route: 048
     Dates: start: 20110906
  3. COREG [Concomitant]
     Indication: HYPERTENSION
     Dates: start: 20060101
  4. ACEON [Concomitant]
     Indication: HYPERTENSION
     Dates: start: 20060101

REACTIONS (2)
  - FLATULENCE [None]
  - HAEMATOCHEZIA [None]
